FAERS Safety Report 10397521 (Version 1)
Quarter: 2014Q1

REPORT INFORMATION
  Report Type: Spontaneous
  Country: US (occurrence: None)
  Receive Date: 20130815
  Receipt Date: 20130815
  Transmission Date: 20141002
  Serious: Yes (Hospitalization, Other)
  Sender: FDA-Public Use
  Company Number: ADR-2012-01551

PATIENT
  Sex: Female

DRUGS (5)
  1. BACLOFEN INTRATHECAL [Suspect]
     Indication: POST LAMINECTOMY SYNDROME
  2. BACLOFEN INTRATHECAL [Suspect]
     Indication: SPINAL PAIN
  3. CLONIDINE [Concomitant]
  4. FENTANYL [Concomitant]
  5. PRIALT (ZICONOTIDE) [Concomitant]

REACTIONS (4)
  - Drug withdrawal syndrome [None]
  - Vomiting [None]
  - Chills [None]
  - Pyrexia [None]
